FAERS Safety Report 6129861-5 (Version None)
Quarter: 2009Q1

REPORT INFORMATION
  Report Type: 
  Country: None (occurrence: None)
  Receive Date: 20090323
  Receipt Date: 20090323
  Transmission Date: 20090719
  Serious: Yes (Other)
  Sender: FDA-Public Use
  Company Number: None

PATIENT
  Age: 41 Year
  Sex: Female
  Weight: 53.5244 kg

DRUGS (1)
  1. SINGULAIR [Suspect]
     Dosage: 1 PILL ONCE A NIGHT

REACTIONS (2)
  - DRY EYE [None]
  - VISION BLURRED [None]
